FAERS Safety Report 23033956 (Version 2)
Quarter: 2023Q4

REPORT INFORMATION
  Report Type: Spontaneous
  Country: FR (occurrence: FR)
  Receive Date: 20231005
  Receipt Date: 20231027
  Transmission Date: 20240110
  Serious: Yes (Hospitalization)
  Sender: FDA-Public Use
  Company Number: None

PATIENT
  Age: 30 Year
  Sex: Male

DRUGS (3)
  1. LIDOCAINE [Suspect]
     Active Substance: LIDOCAINE
     Indication: Debridement
     Dosage: UNKNOWN
     Route: 042
     Dates: start: 20230801, end: 20230801
  2. LOXAPINE [Suspect]
     Active Substance: LOXAPINE
     Indication: Hallucination
     Dosage: AT NIGHT
     Dates: start: 20230731
  3. EPINEPHRINE [Suspect]
     Active Substance: EPINEPHRINE
     Indication: Debridement
     Dosage: UNKNOWN
     Route: 042
     Dates: start: 20230801, end: 20230801

REACTIONS (3)
  - Dyskinesia [Recovered/Resolved]
  - Incorrect route of product administration [Recovered/Resolved]
  - Sinus tachycardia [Recovered/Resolved]

NARRATIVE: CASE EVENT DATE: 20230801
